FAERS Safety Report 15738821 (Version 1)
Quarter: 2018Q4

REPORT INFORMATION
  Report Type: Spontaneous
  Country: BR (occurrence: BR)
  Receive Date: 20181219
  Receipt Date: 20181219
  Transmission Date: 20190205
  Serious: Yes (Other)
  Sender: FDA-Public Use
  Company Number: BR-UCBSA-2018054220

PATIENT
  Age: 3 Month
  Sex: Female
  Weight: 6 kg

DRUGS (1)
  1. CIMZIA [Suspect]
     Active Substance: CERTOLIZUMAB PEGOL
     Indication: RHEUMATOID ARTHRITIS
     Dosage: 400 MG, MONTHLY (QM)
     Route: 063
     Dates: start: 20181105

REACTIONS (3)
  - Irritability [Unknown]
  - Exposure via breast milk [Unknown]
  - Haematochezia [Unknown]

NARRATIVE: CASE EVENT DATE: 2018
